FAERS Safety Report 17529205 (Version 4)
Quarter: 2023Q1

REPORT INFORMATION
  Report Type: Spontaneous
  Country: ES (occurrence: ES)
  Receive Date: 20200311
  Receipt Date: 20230127
  Transmission Date: 20230418
  Serious: Yes (Other)
  Sender: FDA-Public Use
  Company Number: ES-AMERICAN REGENT INC-2020000632

PATIENT
  Age: 81 Year
  Sex: Male

DRUGS (15)
  1. FERINJECT [Suspect]
     Active Substance: FERRIC CARBOXYMALTOSE
     Indication: Iron deficiency anaemia
     Dosage: UNK
     Dates: start: 20200122, end: 20200122
  2. FERINJECT [Suspect]
     Active Substance: FERRIC CARBOXYMALTOSE
     Dosage: 500 MILLIGRAM (5 VIALS), 1 IN 1 TOTAL
     Route: 042
     Dates: start: 20200213, end: 20200213
  3. ALLOPURINOL [Concomitant]
     Active Substance: ALLOPURINOL
     Indication: Product used for unknown indication
     Dosage: 30 TABLETS (300 MG, 1 IN 1 D)
     Route: 048
     Dates: start: 20161216
  4. CYANOCOBALAMIN [Concomitant]
     Active Substance: CYANOCOBALAMIN
     Indication: Product used for unknown indication
     Dosage: 5 AMPOULES (1000 MG, 1 IN 1 MONTH)
     Route: 042
     Dates: start: 20120602
  5. ATORVASTATIN CALCIUM [Concomitant]
     Active Substance: ATORVASTATIN CALCIUM
     Indication: Product used for unknown indication
     Dosage: 40 MILLIGRAM, 1 IN 1 D
     Route: 048
  6. LUMIGAN [Concomitant]
     Active Substance: BIMATOPROST
     Indication: Product used for unknown indication
     Dosage: 30 CONTAINERS (0.8 ML, 1 IN 1 D)
     Dates: start: 20160509
  7. METFORMINA                         /00082701/ [Concomitant]
     Indication: Product used for unknown indication
     Dosage: 850 MG (425 MG, 1 IN 12 HR)
     Route: 048
     Dates: end: 20180910
  8. ASPIRIN [Concomitant]
     Active Substance: ASPIRIN
     Indication: Product used for unknown indication
     Dosage: 30 TABLETS (PVC ALUMINIUM) (100 MG, 1 IN 1 D)
     Route: 048
     Dates: start: 20170516
  9. BISOPROLOL [Concomitant]
     Active Substance: BISOPROLOL
     Indication: Product used for unknown indication
     Dosage: 28 TABLETS (2.5 MG, 1 IN 1 D)
     Route: 048
  10. TELMISARTAN CINFA [Concomitant]
     Indication: Product used for unknown indication
     Dosage: 28 TABLETS (20 MG, 1 IN 1 D)
     Route: 048
     Dates: start: 20150209
  11. FLUTICASONE PROPIONATE\FORMOTEROL FUMARATE [Concomitant]
     Active Substance: FLUTICASONE PROPIONATE\FORMOTEROL FUMARATE
     Indication: Product used for unknown indication
     Dosage: 250MICROGRAM/10 MICROGRAM (2 DOSAGE FORM, 1 IN 12 HR)
     Route: 055
     Dates: start: 20191211
  12. EPLERENONA RATIOPHARM [Concomitant]
     Indication: Product used for unknown indication
     Dosage: 30 TABLETS (50 MG, 1 IN 1 D)
     Route: 048
     Dates: start: 20190411
  13. ESOMEPRAZOL CINFA [Concomitant]
     Indication: Product used for unknown indication
     Dosage: 20 MG, 1 IN 1 D
     Route: 048
     Dates: start: 20150514
  14. EDEMOX                             /00016901/ [Concomitant]
     Indication: Product used for unknown indication
     Dosage: 20 TABLETS (250 MG, 1 IN 2 D)
     Route: 048
  15. FUROSEMIDE [Concomitant]
     Active Substance: FUROSEMIDE
     Indication: Product used for unknown indication
     Dosage: 30 TABLETS (40 MG, 1 IN 12 HR)
     Route: 048
     Dates: start: 20190226

REACTIONS (4)
  - Malaise [Recovered/Resolved]
  - Nausea [Recovered/Resolved]
  - Dizziness [Recovered/Resolved]
  - Chest pain [Unknown]

NARRATIVE: CASE EVENT DATE: 20200101
